FAERS Safety Report 4336044-8 (Version None)
Quarter: 2004Q1

REPORT INFORMATION
  Report Type: 
  Country: None (occurrence: None)
  Receive Date: 20040329
  Receipt Date: 20031211
  Transmission Date: 20041129
  Serious: Yes (Hospitalization)
  Sender: FDA-Public Use
  Company Number: 2003-10-0614

PATIENT
  Age: 5 Year
  Sex: Male

DRUGS (3)
  1. CLARITIN [Suspect]
     Indication: NASAL CONGESTION
     Dosage: 1 TSP QAM ORAL
     Route: 048
     Dates: start: 20010101
  2. CLARITIN [Suspect]
     Indication: RHINORRHOEA
     Dosage: 1 TSP QAM ORAL
     Route: 048
     Dates: start: 20010101
  3. NASONEX [Suspect]
     Dosage: NASAL SPRAY

REACTIONS (1)
  - HEPATIC ENZYME INCREASED [None]
